FAERS Safety Report 19237861 (Version 2)
Quarter: 2021Q2

REPORT INFORMATION
  Report Type: Report from Study
  Country: US (occurrence: US)
  Receive Date: 20210510
  Receipt Date: 20210609
  Transmission Date: 20210717
  Serious: Yes (Hospitalization, Other)
  Sender: FDA-Public Use
  Company Number: US-GILEAD-2021-0527620

PATIENT
  Sex: Male

DRUGS (31)
  1. CLONAZEPAM. [Concomitant]
     Active Substance: CLONAZEPAM
  2. MIRAPEX [Concomitant]
     Active Substance: PRAMIPEXOLE DIHYDROCHLORIDE
  3. IRON [Concomitant]
     Active Substance: IRON
  4. BENZOYL PEROXIDE. [Concomitant]
     Active Substance: BENZOYL PEROXIDE
  5. FOLIC ACID. [Concomitant]
     Active Substance: FOLIC ACID
  6. PROTONIX [OMEPRAZOLE] [Concomitant]
     Active Substance: OMEPRAZOLE
  7. EPIDIOLEX [Concomitant]
     Active Substance: CANNABIDIOL
  8. ALDACTAZIDE [Concomitant]
     Active Substance: HYDROCHLOROTHIAZIDE\SPIRONOLACTONE
  9. PROSOURCE TF [Concomitant]
  10. BISACODYL. [Concomitant]
     Active Substance: BISACODYL
  11. FERROUS SULFATE. [Concomitant]
     Active Substance: FERROUS SULFATE
  12. VIMPAT [Concomitant]
     Active Substance: LACOSAMIDE
  13. KEPPRA [Concomitant]
     Active Substance: LEVETIRACETAM
  14. MUPIROCIN. [Concomitant]
     Active Substance: MUPIROCIN
  15. POTASSIUM [Concomitant]
     Active Substance: POTASSIUM
  16. ALBUTEROL SULFATE. [Concomitant]
     Active Substance: ALBUTEROL SULFATE
  17. VALIUM [Concomitant]
     Active Substance: DIAZEPAM
  18. CITRIC ACID [Concomitant]
     Active Substance: CITRIC ACID MONOHYDRATE
  19. MICONAZOLE. [Concomitant]
     Active Substance: MICONAZOLE
  20. NYSTATIN. [Concomitant]
     Active Substance: NYSTATIN
  21. BACTRIM DS [Concomitant]
     Active Substance: SULFAMETHOXAZOLE\TRIMETHOPRIM
  22. AZTREONAM LYSINE [Suspect]
     Active Substance: AZTREONAM LYSINE
     Indication: PSEUDOMONAS INFECTION
     Dosage: RECONSTITUTE WITH 1ML SUPPLIED DILUENT, 28 DAYS ON, 28 DAYS OFF
     Route: 055
     Dates: start: 201812
  23. SODIUM CHLORIDE. [Concomitant]
     Active Substance: SODIUM CHLORIDE
  24. ACIDOPHILUS/PECTIN [Concomitant]
  25. DIAZEPAM. [Concomitant]
     Active Substance: DIAZEPAM
  26. POLYETHYLENE GLYCOL 3350. [Concomitant]
     Active Substance: POLYETHYLENE GLYCOL 3350
  27. PULMOZYME [Concomitant]
     Active Substance: DORNASE ALFA
  28. BUDESONIDE. [Concomitant]
     Active Substance: BUDESONIDE
  29. NANOVM 1 TO 3 YEARS [Concomitant]
  30. PHENOBARBITAL. [Concomitant]
     Active Substance: PHENOBARBITAL
  31. TOBRAMYCIN. [Concomitant]
     Active Substance: TOBRAMYCIN

REACTIONS (5)
  - Off label use [Not Recovered/Not Resolved]
  - Sputum discoloured [Unknown]
  - Respiratory rate increased [Unknown]
  - Seizure [Unknown]
  - Sepsis [Unknown]
